FAERS Safety Report 24533475 (Version 6)
Quarter: 2025Q2

REPORT INFORMATION
  Report Type: Spontaneous
  Country: UM (occurrence: US)
  Receive Date: 20241022
  Receipt Date: 20250611
  Transmission Date: 20250716
  Serious: Yes (Hospitalization, Disabling, Other)
  Sender: PFIZER
  Company Number: UM-PFIZER INC-PV202400130084

PATIENT
  Age: 35 Year
  Sex: Female
  Weight: 61.224 kg

DRUGS (8)
  1. DEPO-PROVERA [Suspect]
     Active Substance: MEDROXYPROGESTERONE ACETATE
     Indication: Contraception
     Route: 030
     Dates: start: 1997, end: 2015
  2. ACETAMINOPHEN [Concomitant]
     Active Substance: ACETAMINOPHEN
     Route: 048
  3. MIRENA [Concomitant]
     Active Substance: LEVONORGESTREL
  4. NORCO [Concomitant]
     Active Substance: ACETAMINOPHEN\HYDROCODONE BITARTRATE
     Route: 048
  5. SYNTHROID [Concomitant]
     Active Substance: LEVOTHYROXINE SODIUM
     Dosage: 100 UG, DAILY (EVERY MORNING)
     Route: 048
  6. TRAMADOL HYDROCHLORIDE [Concomitant]
     Active Substance: TRAMADOL HYDROCHLORIDE
     Route: 048
  7. ULTRAM [Concomitant]
     Active Substance: TRAMADOL HYDROCHLORIDE
     Route: 048
  8. LEVOTHYROXINE SODIUM [Concomitant]
     Active Substance: LEVOTHYROXINE SODIUM

REACTIONS (6)
  - Meningioma [Recovered/Resolved with Sequelae]
  - Thyroid cancer [Unknown]
  - Deafness unilateral [Not Recovered/Not Resolved]
  - Cerebral haemorrhage [Unknown]
  - Blindness [Unknown]
  - Headache [Not Recovered/Not Resolved]

NARRATIVE: CASE EVENT DATE: 20041105
